FAERS Safety Report 9708415 (Version 1)
Quarter: 2013Q4

REPORT INFORMATION
  Report Type: Spontaneous
  Country: US (occurrence: None)
  Receive Date: 20131121
  Receipt Date: 20131121
  Transmission Date: 20140711
  Serious: Yes (Other)
  Sender: FDA-Public Use
  Company Number: AUR-APL-2013-09674

PATIENT
  Age: 26 Year
  Sex: Male

DRUGS (1)
  1. SUMATRIPTAN [Suspect]
     Indication: MIGRAINE
     Route: 058

REACTIONS (6)
  - Autonomic dysreflexia [None]
  - Neck pain [None]
  - Myalgia [None]
  - Headache [None]
  - Hyperhidrosis [None]
  - Musculoskeletal stiffness [None]
